FAERS Safety Report 18349733 (Version 1)
Quarter: 2020Q4

REPORT INFORMATION
  Report Type: Spontaneous
  Country: PR (occurrence: PR)
  Receive Date: 20201006
  Receipt Date: 20201006
  Transmission Date: 20210114
  Serious: Yes (Other)
  Sender: FDA-Public Use
  Company Number: PR-PFIZER INC-2020381709

PATIENT
  Age: 56 Year
  Sex: Female

DRUGS (2)
  1. EUCRISA [Suspect]
     Active Substance: CRISABOROLE
     Indication: DERMATITIS ATOPIC
     Dosage: UNK, 2X/DAY(APPLY TO AFFECTED AREA OF HANDS EVERY 12 HOURS)
  2. EUCRISA [Suspect]
     Active Substance: CRISABOROLE
     Indication: DYSHIDROTIC ECZEMA

REACTIONS (3)
  - Wound [Unknown]
  - Dry skin [Unknown]
  - Haemorrhage [Unknown]
